FAERS Safety Report 8129306-X (Version None)
Quarter: 2012Q1

REPORT INFORMATION
  Report Type: 
  Country: None (occurrence: None)
  Receive Date: 20120210
  Receipt Date: 20120207
  Transmission Date: 20120608
  Serious: Yes (Death, Other)
  Sender: FDA-Public Use
  Company Number: PHHY2012FR010726

PATIENT
  Age: 75 Year

DRUGS (3)
  1. METHOTREXATE [Suspect]
     Indication: PEMPHIGOID
     Dosage: UNK UKN, UNK
  2. FOLIC ACID [Concomitant]
     Dosage: UNK UKN, UNK
  3. SUPER POTENT TOPICAL STEROIDS [Concomitant]
     Indication: PEMPHIGOID
     Dosage: UNK UKN, UNK
     Route: 061

REACTIONS (2)
  - DEATH [None]
  - GASTROINTESTINAL HAEMORRHAGE [None]
